FAERS Safety Report 19496917 (Version 1)
Quarter: 2021Q3

REPORT INFORMATION
  Report Type: Spontaneous
  Country: US (occurrence: US)
  Receive Date: 20210701
  Receipt Date: 20210701
  Transmission Date: 20211014
  Serious: Yes (Other)
  Sender: FDA-Public Use
  Company Number: None

PATIENT
  Age: 33 Year
  Sex: Female

DRUGS (3)
  1. XANAX [Suspect]
     Active Substance: ALPRAZOLAM
  2. SEROQUEL [Suspect]
     Active Substance: QUETIAPINE FUMARATE
  3. ATENOLOL. [Suspect]
     Active Substance: ATENOLOL

REACTIONS (2)
  - Premature labour [None]
  - Exposure during pregnancy [None]

NARRATIVE: CASE EVENT DATE: 20191030
